FAERS Safety Report 8681349 (Version 2)
Quarter: 2012Q4

REPORT INFORMATION
  Report Type: 
  Country: US (occurrence: US)
  Receive Date: 20120725
  Receipt Date: 20121025
  Transmission Date: 20130627
  Serious: Yes (Other)
  Sender: FDA-Public Use
  Company Number: US-PFIZER INC-2012176297

PATIENT
  Age: 73 Year
  Sex: Female
  Weight: 77.1 kg

DRUGS (14)
  1. LYRICA [Suspect]
     Indication: NEUROPATHY PERIPHERAL
     Dosage: 75 mg, 3x/day
     Route: 048
  2. POTASSIUM CHLORIDE [Concomitant]
     Indication: CARDIAC DISORDER
     Dosage: 20 mg, daily
  3. POTASSIUM CHLORIDE [Concomitant]
     Indication: MYOCARDIAL INFARCTION
  4. AMITRIPTYLINE [Concomitant]
     Indication: SLEEP DISORDER
     Dosage: 30 mg, daily
  5. CLOPIDOGREL BISULFATE [Concomitant]
     Indication: ANTICOAGULANT THERAPY
     Dosage: 75 mg, daily
  6. TRAMADOL [Concomitant]
     Indication: PAIN
     Dosage: 100 mg, daily
  7. TRAMADOL [Concomitant]
     Indication: SLEEP DISORDER
  8. AMLODIPINE [Concomitant]
     Indication: CARDIAC DISORDER
     Dosage: 5 mg, daily
  9. WARFARIN [Concomitant]
     Indication: ANTICOAGULANT THERAPY
     Dosage: UNK,daily
  10. DIGOXIN [Concomitant]
     Indication: CARDIAC DISORDER
     Dosage: UNK,daily
  11. ISOSORBIDE [Concomitant]
     Indication: CARDIAC DISORDER
     Dosage: 30 mg, daily
  12. SIMVASTATIN [Concomitant]
     Indication: CARDIAC DISORDER
     Dosage: 30 mg, daily
  13. LISINOPRIL [Concomitant]
     Indication: CARDIAC DISORDER
     Dosage: 5 mg, daily
  14. LEVOTHYROXINE [Concomitant]
     Indication: THYROID DISORDER
     Dosage: 100 ug, daily

REACTIONS (3)
  - Appendicectomy [Unknown]
  - Oedema peripheral [Recovering/Resolving]
  - Memory impairment [Unknown]
